FAERS Safety Report 10159488 (Version 1)
Quarter: 2014Q2

REPORT INFORMATION
  Report Type: Spontaneous
  Country: US (occurrence: None)
  Receive Date: 20140507
  Receipt Date: 20140507
  Transmission Date: 20141212
  Serious: Yes (Other)
  Sender: FDA-Public Use
  Company Number: None

PATIENT
  Age: 33 Year
  Sex: Female
  Weight: 72.58 kg

DRUGS (2)
  1. CEPHALEXIN [Suspect]
     Indication: SKIN INFECTION
     Dosage: 2 PILLS?TWICE DAILY?TAKEN BY MOUTH?
     Route: 048
     Dates: start: 20140502, end: 20140303
  2. CEPHALEXIN [Suspect]
     Indication: INJECTION SITE INFECTION
     Dosage: 2 PILLS?TWICE DAILY?TAKEN BY MOUTH?
     Route: 048
     Dates: start: 20140502, end: 20140303

REACTIONS (3)
  - Hypersensitivity [None]
  - Dry skin [None]
  - Skin tightness [None]
